FAERS Safety Report 13138544 (Version 1)
Quarter: 2017Q1

REPORT INFORMATION
  Report Type: Spontaneous
  Country: US (occurrence: US)
  Receive Date: 20170123
  Receipt Date: 20170123
  Transmission Date: 20170428
  Serious: Yes (Disabling)
  Sender: FDA-Public Use
  Company Number: None

PATIENT
  Age: 52 Year
  Sex: Female
  Weight: 108.96 kg

DRUGS (5)
  1. NEXIUM [Concomitant]
     Active Substance: ESOMEPRAZOLE MAGNESIUM
  2. VITAMIN D [Concomitant]
     Active Substance: CHOLECALCIFEROL
  3. STEROIDS [Concomitant]
     Active Substance: UNSPECIFIED INGREDIENT
  4. LEVAQUIN [Suspect]
     Active Substance: LEVOFLOXACIN
     Indication: PRODUCT USED FOR UNKNOWN INDICATION
     Route: 048
     Dates: start: 20150728, end: 20150811
  5. CALFATE [Concomitant]

REACTIONS (11)
  - Skin disorder [None]
  - Swelling [None]
  - Dry eye [None]
  - Tendon injury [None]
  - Arthralgia [None]
  - Pain in extremity [None]
  - Stevens-Johnson syndrome [None]
  - Myalgia [None]
  - Quality of life decreased [None]
  - Visual impairment [None]
  - Stomatitis [None]

NARRATIVE: CASE EVENT DATE: 20150728
